FAERS Safety Report 8973213 (Version 1)
Quarter: 2012Q4

REPORT INFORMATION
  Report Type: Report from Study
  Country: US (occurrence: US)
  Receive Date: 20121218
  Receipt Date: 20121218
  Transmission Date: 20130627
  Serious: Yes (Other)
  Sender: FDA-Public Use
  Company Number: US-ABBOTT-12P-163-0953163-00

PATIENT
  Sex: Male

DRUGS (2)
  1. HUMIRA 40 MG/0.8 ML PEN [Suspect]
     Indication: PSORIATIC ARTHROPATHY
     Dosage: Interrupted
     Route: 058
     Dates: start: 201003, end: 2011
  2. HUMIRA 40 MG/0.8 ML PEN [Suspect]
     Route: 058
     Dates: start: 20120828

REACTIONS (9)
  - Hernia repair [Not Recovered/Not Resolved]
  - Arthritis [Not Recovered/Not Resolved]
  - Nervousness [Not Recovered/Not Resolved]
  - Anxiety [Not Recovered/Not Resolved]
  - Rash papular [Not Recovered/Not Resolved]
  - Cheilitis [Not Recovered/Not Resolved]
  - Oral herpes [Not Recovered/Not Resolved]
  - Cough [Unknown]
  - Nasopharyngitis [Unknown]
